FAERS Safety Report 6795267-9 (Version None)
Quarter: 2010Q2

REPORT INFORMATION
  Report Type: 
  Country: None (occurrence: None)
  Receive Date: 20100625
  Receipt Date: 20100621
  Transmission Date: 20101027
  Serious: Yes (Hospitalization)
  Sender: FDA-Public Use
  Company Number: CHPA2010US10379

PATIENT
  Age: 57 Year
  Sex: Female
  Weight: 68.027 kg

DRUGS (1)
  1. PRIVATE LABEL (NCH) [Suspect]
     Indication: SMOKING CESSATION THERAPY
     Dosage: 21 MG, QD
     Route: 062
     Dates: start: 20091201, end: 20091201

REACTIONS (1)
  - ARTHROPATHY [None]
